FAERS Safety Report 6246336-3 (Version None)
Quarter: 2009Q2

REPORT INFORMATION
  Report Type: 
  Country: None (occurrence: None)
  Receive Date: 20090624
  Receipt Date: 20090624
  Transmission Date: 20091009
  Serious: No
  Sender: FDA-Public Use
  Company Number: None

PATIENT
  Age: 41 Year
  Sex: Male
  Weight: 116.12 kg

DRUGS (1)
  1. LITHIUM CARBONATE [Suspect]
     Dosage: 450 MG AM PO
     Route: 048
     Dates: start: 20090525, end: 20090608

REACTIONS (4)
  - HEADACHE [None]
  - NAUSEA [None]
  - SEDATION [None]
  - VOMITING [None]
